FAERS Safety Report 5196563-1 (Version None)
Quarter: 2006Q4

REPORT INFORMATION
  Report Type: 
  Country: None (occurrence: None)
  Receive Date: 20061222
  Receipt Date: 20061208
  Transmission Date: 20070319
  Serious: Yes (Other)
  Sender: FDA-Public Use
  Company Number: 8019653

PATIENT
  Age: 68 Year
  Sex: Male
  Weight: 70 kg

DRUGS (6)
  1. KEPPRA [Suspect]
     Indication: EPILEPSY
     Dosage: 500 MG 1/2D PO
     Route: 048
     Dates: start: 20060630, end: 20060926
  2. KEPPRA [Suspect]
     Indication: EPILEPSY
     Dosage: 250 MG 1/2D PO
     Route: 048
     Dates: start: 20060927, end: 20061003
  3. VALPROIC ACID [Concomitant]
  4. CAPTOPRIL [Concomitant]
  5. SIMVASTATIN [Concomitant]
  6. ASPIRIN [Concomitant]

REACTIONS (1)
  - THROMBOCYTOPENIA [None]
